FAERS Safety Report 4550633-7 (Version None)
Quarter: 2004Q4

REPORT INFORMATION
  Report Type: 
  Country: None (occurrence: None)
  Receive Date: 20041227
  Receipt Date: 20040913
  Transmission Date: 20050328
  Serious: No
  Sender: FDA-Public Use
  Company Number: 04P-163-0272945-00

PATIENT
  Age: 57 Year
  Sex: Male

DRUGS (6)
  1. HUMIRA [Suspect]
     Indication: RHEUMATOID ARTHRITIS
     Dosage: 40 MG, 1 IN 2 WK, SUBCUTANEOUS
     Route: 058
     Dates: start: 20030901
  2. LEFLUNOMIDE [Concomitant]
  3. PREDNISONE [Concomitant]
  4. METOPROLOL SUCCINATE [Concomitant]
  5. CO-DIOVAN [Concomitant]
  6. LEXAPRO FILM-COATED TABLETS (ESCITALOPRAM) [Concomitant]

REACTIONS (1)
  - OPTIC NERVE DISORDER [None]
